FAERS Safety Report 16017008 (Version 6)
Quarter: 2020Q2

REPORT INFORMATION
  Report Type: Spontaneous
  Country: AU (occurrence: AU)
  Receive Date: 20190228
  Receipt Date: 20200428
  Transmission Date: 20200713
  Serious: Yes (Other)
  Sender: FDA-Public Use
  Company Number: AU-ALEXION PHARMACEUTICALS INC.-A201902679

PATIENT
  Age: 47 Year
  Sex: Male
  Weight: 123 kg

DRUGS (5)
  1. SOLIRIS [Suspect]
     Active Substance: ECULIZUMAB
     Indication: ATYPICAL HAEMOLYTIC URAEMIC SYNDROME
     Dosage: UNK
     Route: 065
     Dates: start: 20180706
  2. SOLIRIS [Suspect]
     Active Substance: ECULIZUMAB
     Dosage: 1200 MG, Q2W
     Route: 042
  3. RAMIPRIL. [Concomitant]
     Active Substance: RAMIPRIL
     Indication: HYPERTENSION
     Dosage: 10 MG, QD
     Route: 065
     Dates: start: 201807
  4. PREDNISOLONE. [Concomitant]
     Active Substance: PREDNISOLONE
     Indication: CHRONIC GRAFT VERSUS HOST DISEASE
     Dosage: 2.5 MG, QD
     Route: 065
     Dates: start: 20190204
  5. SOLIRIS [Suspect]
     Active Substance: ECULIZUMAB
     Dosage: 1200 MG, QW
     Route: 042

REACTIONS (19)
  - Oedema peripheral [Unknown]
  - Glomerular filtration rate decreased [Unknown]
  - Haemolysis [Recovered/Resolved]
  - Urine protein/creatinine ratio increased [Unknown]
  - Multiple organ dysfunction syndrome [Recovered/Resolved]
  - Blood creatinine increased [Unknown]
  - Drug level below therapeutic [Unknown]
  - Body surface area increased [Unknown]
  - Fatigue [Unknown]
  - Renal impairment [Not Recovered/Not Resolved]
  - Overweight [Unknown]
  - Therapeutic response decreased [Unknown]
  - Prothrombin time shortened [Unknown]
  - Haematocrit decreased [Unknown]
  - Red blood cell count decreased [Unknown]
  - Hypertension [Unknown]
  - Thrombotic microangiopathy [Unknown]
  - Dyspnoea [Unknown]
  - Haemoglobin decreased [Unknown]

NARRATIVE: CASE EVENT DATE: 20180806
